FAERS Safety Report 13584059 (Version 1)
Quarter: 2017Q2

REPORT INFORMATION
  Report Type: Report from Study
  Country: US (occurrence: US)
  Receive Date: 20170526
  Receipt Date: 20170526
  Transmission Date: 20170830
  Serious: Yes (Hospitalization)
  Sender: FDA-Public Use
  Company Number: US-ROCHE-1939502

PATIENT
  Sex: Female

DRUGS (1)
  1. NUTROPIN AQ [Suspect]
     Active Substance: SOMATROPIN
     Indication: PRODUCT USED FOR UNKNOWN INDICATION
     Dosage: ONGOING:YES
     Route: 058

REACTIONS (4)
  - Adrenocortical insufficiency acute [Recovered/Resolved]
  - Thyroid hormones decreased [Unknown]
  - Viral upper respiratory tract infection [Unknown]
  - Blood sodium decreased [Recovered/Resolved]
